FAERS Safety Report 23436950 (Version 1)
Quarter: 2024Q1

REPORT INFORMATION
  Report Type: Spontaneous
  Country: FR (occurrence: FR)
  Receive Date: 20240124
  Receipt Date: 20240124
  Transmission Date: 20240409
  Serious: Yes (Hospitalization)
  Sender: FDA-Public Use
  Company Number: None

PATIENT
  Age: 72 Year
  Sex: Male
  Weight: 70 kg

DRUGS (10)
  1. CARBOPLATIN [Suspect]
     Active Substance: CARBOPLATIN
     Indication: Lung neoplasm malignant
     Dates: start: 20231016, end: 20231016
  2. ETOPOSIDE [Suspect]
     Active Substance: ETOPOSIDE
     Indication: Lung neoplasm malignant
     Dates: start: 20231016, end: 20231016
  3. PEMBROLIZUMAB [Suspect]
     Active Substance: PEMBROLIZUMAB
     Indication: Lung neoplasm malignant
     Dosage: 25 MG/ML, CONCENTRATE FOR SOLUTION FOR INFUSION
     Dates: start: 20231016, end: 20231016
  4. SPIRONOLACTONE [Concomitant]
     Active Substance: SPIRONOLACTONE
     Indication: Non-cirrhotic portal hypertension
  5. AVAPRITINIB [Concomitant]
     Active Substance: AVAPRITINIB
     Indication: Chronic myelomonocytic leukaemia
     Dates: start: 202208
  6. FUROSEMIDE [Concomitant]
     Active Substance: FUROSEMIDE
     Indication: Non-cirrhotic portal hypertension
  7. CARVEDILOL [Concomitant]
     Active Substance: CARVEDILOL
     Indication: Non-cirrhotic portal hypertension
  8. TRIPTORELIN ACETATE [Concomitant]
     Active Substance: TRIPTORELIN ACETATE
     Indication: Prostatic adenoma
     Dosage: 22.5 MG, POWDER AND SOLVENT FOR PROLONGED RELEASE?SUSPENSION FOR INJECTION
  9. CARBOPLATIN [Suspect]
     Active Substance: CARBOPLATIN
     Indication: Lung neoplasm malignant
     Dates: start: 20231022, end: 20231022
  10. ETOPOSIDE [Suspect]
     Active Substance: ETOPOSIDE
     Indication: Lung neoplasm malignant
     Dates: start: 20230822, end: 20230822

REACTIONS (1)
  - Meningitis aseptic [Recovering/Resolving]

NARRATIVE: CASE EVENT DATE: 20231028
